FAERS Safety Report 14555066 (Version 2)
Quarter: 2018Q1

REPORT INFORMATION
  Report Type: Spontaneous
  Country: US (occurrence: US)
  Receive Date: 20180220
  Receipt Date: 20180222
  Transmission Date: 20180509
  Serious: Yes (Hospitalization)
  Sender: FDA-Public Use
  Company Number: US-GLAXOSMITHKLINE-US2018026717

PATIENT
  Sex: Female

DRUGS (3)
  1. MIRALAX [Concomitant]
     Active Substance: POLYETHYLENE GLYCOL 3350
  2. ANORO ELLIPTA [Suspect]
     Active Substance: UMECLIDINIUM BROMIDE\VILANTEROL TRIFENATATE
     Indication: CHRONIC OBSTRUCTIVE PULMONARY DISEASE
     Dosage: 1 PUFF(S), 1D
     Route: 055
     Dates: start: 2017
  3. ALBUTEROL SULFATE. [Concomitant]
     Active Substance: ALBUTEROL SULFATE

REACTIONS (9)
  - Expired product administered [Not Recovered/Not Resolved]
  - Oral administration complication [Unknown]
  - Drug ineffective [Not Recovered/Not Resolved]
  - Product storage error [Not Recovered/Not Resolved]
  - Underdose [Unknown]
  - Pain [Unknown]
  - Constipation [Recovered/Resolved]
  - Product deposit [Unknown]
  - Medication residue present [Unknown]

NARRATIVE: CASE EVENT DATE: 2017
